FAERS Safety Report 15934743 (Version 2)
Quarter: 2019Q1

REPORT INFORMATION
  Report Type: Spontaneous
  Country: TR (occurrence: TR)
  Receive Date: 20190207
  Receipt Date: 20190318
  Transmission Date: 20190417
  Serious: Yes (Other)
  Sender: FDA-Public Use
  Company Number: PHHY2019TR028488

PATIENT
  Age: 16 Year
  Sex: Female
  Weight: 55 kg

DRUGS (1)
  1. REVOLADE [Suspect]
     Active Substance: ELTROMBOPAG
     Indication: IMMUNE THROMBOCYTOPENIC PURPURA
     Dosage: 75 MG, QD
     Route: 048
     Dates: start: 2016, end: 20190110

REACTIONS (1)
  - Myelofibrosis [Not Recovered/Not Resolved]

NARRATIVE: CASE EVENT DATE: 20181003
